FAERS Safety Report 9083901 (Version 6)
Quarter: 2013Q3

REPORT INFORMATION
  Report Type: Report from Study
  Country: JP (occurrence: JP)
  Receive Date: 20130130
  Receipt Date: 20130702
  Transmission Date: 20140515
  Serious: Yes (Hospitalization)
  Sender: FDA-Public Use
  Company Number: JP-PFIZER INC-2013022712

PATIENT
  Age: 64 Year
  Sex: Female
  Weight: 85.8 kg

DRUGS (22)
  1. TOFACITINIB CITRATE [Suspect]
     Indication: RHEUMATOID ARTHRITIS
     Dosage: 10 MG, 2X/DAY
     Route: 048
     Dates: start: 20091212, end: 20121205
  2. MEDROL [Suspect]
     Indication: RHEUMATOID ARTHRITIS
     Dosage: 4 MG, 1X/DAY
     Dates: start: 20090522, end: 20121210
  3. SELTOUCH [Concomitant]
     Indication: RHEUMATOID ARTHRITIS
     Dosage: UNK
     Dates: start: 20090522, end: 20110404
  4. MOHRUS [Concomitant]
     Indication: RHEUMATOID ARTHRITIS
     Dosage: UNK
     Route: 062
     Dates: start: 20101202
  5. VOLTAREN SR [Concomitant]
     Indication: RHEUMATOID ARTHRITIS
     Dosage: UNK
     Dates: start: 20110819, end: 20121210
  6. FLUITRAN [Concomitant]
     Indication: HYPERTENSION
     Dosage: UNK
     Dates: start: 20050817
  7. BAYMYCARD [Concomitant]
     Indication: HYPERTENSION
     Dosage: UNK
     Dates: start: 20050817
  8. CARDENALIN [Concomitant]
     Indication: HYPERTENSION
     Dosage: UNK
     Dates: start: 20050817
  9. CRESTOR [Concomitant]
     Indication: BLOOD CHOLESTEROL INCREASED
     Dosage: UNK
     Dates: start: 20100722
  10. DEPAS [Concomitant]
     Indication: DEPRESSIVE SYMPTOM
     Dosage: UNK
     Dates: start: 20050817
  11. TOUGHMAC E [Concomitant]
     Indication: GASTRITIS PROPHYLAXIS
     Dosage: UNK
     Dates: start: 20050817
  12. SURGAM [Concomitant]
     Indication: MUSCULOSKELETAL STIFFNESS
     Dosage: UNK
     Dates: start: 20050817
  13. RIZE [Concomitant]
     Indication: DEPRESSIVE SYMPTOM
     Dosage: UNK
     Dates: start: 20050817
  14. U-PAN [Concomitant]
     Indication: DEPRESSIVE SYMPTOM
     Dosage: UNK
     Dates: start: 20050817
  15. TRYPTANOL [Concomitant]
     Indication: DEPRESSED MOOD
     Dosage: UNK
     Dates: start: 1985
  16. METAHISLON [Concomitant]
     Indication: MUSCULOSKELETAL STIFFNESS
     Dosage: UNK
     Dates: start: 20050817
  17. THYRADIN [Concomitant]
     Indication: AUTOIMMUNE THYROIDITIS
     Dosage: UNK
     Dates: start: 1998
  18. HIBON [Concomitant]
     Indication: MUSCULOSKELETAL STIFFNESS
     Dosage: UNK
     Dates: start: 20090522
  19. TAKEPRON [Concomitant]
     Indication: GASTRITIS PROPHYLAXIS
     Dosage: UNK
     Dates: start: 20090821
  20. PRANOPROFEN [Concomitant]
     Indication: GLAUCOMA
     Dosage: UNK
     Dates: start: 20100531
  21. GASMOTIN [Concomitant]
     Indication: GASTRITIS PROPHYLAXIS
     Dosage: UNK
     Dates: start: 20101202
  22. OPALMON [Concomitant]
     Indication: MUSCULOSKELETAL STIFFNESS
     Dosage: UNK
     Dates: start: 20100714

REACTIONS (3)
  - Spondylitis [Recovered/Resolved]
  - Extradural abscess [Recovered/Resolved]
  - Spinal cord disorder [Recovering/Resolving]
